FAERS Safety Report 9992164 (Version 1)
Quarter: 2014Q1

REPORT INFORMATION
  Report Type: Spontaneous
  Country: US (occurrence: None)
  Receive Date: 20140228
  Receipt Date: 20140228
  Transmission Date: 20141002
  Serious: Yes (Hospitalization)
  Sender: FDA-Public Use
  Company Number: UTC-033830

PATIENT
  Age: 61 Year
  Sex: Male
  Weight: 69.54 kg

DRUGS (4)
  1. REMODULIN [Suspect]
     Indication: COR PULMONALE CHRONIC
     Dosage: 24.4/ UG/KG (0.017 UG/KG , 1 IN 1 MIN ), INTRAVENOUS DRIP
     Route: 041
     Dates: start: 20120417
  2. TRACLEER (BOSENTAN) (UNKNOWN) [Concomitant]
  3. REVATIO (SILDENAFIL CITRATE) [Concomitant]
  4. WARFARIN (UNKNOWN) [Concomitant]

REACTIONS (1)
  - Device related infection [None]
